FAERS Safety Report 24197281 (Version 4)
Quarter: 2025Q1

REPORT INFORMATION
  Report Type: Spontaneous
  Country: US (occurrence: US)
  Receive Date: 20240810
  Receipt Date: 20250113
  Transmission Date: 20250408
  Serious: No
  Sender: SANOFI AVENTIS
  Company Number: US-SA-SAC20240806000282

PATIENT
  Age: 73 Year
  Sex: Female

DRUGS (24)
  1. DUPIXENT [Suspect]
     Active Substance: DUPILUMAB
     Indication: Asthma
     Route: 058
     Dates: start: 20240726, end: 20240726
  2. DUPIXENT [Suspect]
     Active Substance: DUPILUMAB
     Dosage: 300 MG, QOW
     Route: 058
     Dates: start: 2024
  3. AZELASTINE [Concomitant]
     Active Substance: AZELASTINE
  4. LORATADINE [Concomitant]
     Active Substance: LORATADINE
  5. COLACE [Concomitant]
     Active Substance: DOCUSATE SODIUM
  6. CRESTOR [Concomitant]
     Active Substance: ROSUVASTATIN CALCIUM
  7. FISH OIL [Concomitant]
     Active Substance: FISH OIL
  8. FLUTICASONE [Concomitant]
     Active Substance: FLUTICASONE
  9. IMODIUM [Concomitant]
     Active Substance: LOPERAMIDE HYDROCHLORIDE
  10. PROLIA [Concomitant]
     Active Substance: DENOSUMAB
  11. SINGULAIR [Concomitant]
     Active Substance: MONTELUKAST SODIUM
  12. TRELEGY ELLIPTA [Concomitant]
     Active Substance: FLUTICASONE FUROATE\UMECLIDINIUM BROMIDE\VILANTEROL TRIFENATATE
  13. TYLENOL [Concomitant]
     Active Substance: ACETAMINOPHEN
  14. ALBUTEROL SULFATE [Concomitant]
     Active Substance: ALBUTEROL SULFATE
  15. VITAMIN D2 [Concomitant]
     Active Substance: ERGOCALCIFEROL
  16. EPINEPHRINE [Concomitant]
     Active Substance: EPINEPHRINE
  17. MINERALS\VITAMINS [Concomitant]
     Active Substance: MINERALS\VITAMINS
  18. CYANOCOBALAMIN [Concomitant]
     Active Substance: CYANOCOBALAMIN
  19. VITAMIN E [Concomitant]
     Active Substance: .ALPHA.-TOCOPHEROL
  20. CENTRUM ADULTS [Concomitant]
  21. ASCORBIC ACID [Concomitant]
     Active Substance: ASCORBIC ACID
  22. ALLEGRA ALLERGY [Concomitant]
     Active Substance: FEXOFENADINE HYDROCHLORIDE
  23. AZELASTINE HYDROCHLORIDE\FLUTICASONE PROPIONATE [Concomitant]
     Active Substance: AZELASTINE HYDROCHLORIDE\FLUTICASONE PROPIONATE
  24. CALCIUM\VITAMIN D [Concomitant]
     Active Substance: CALCIUM\VITAMIN D

REACTIONS (7)
  - Impaired quality of life [Unknown]
  - Sleep disorder due to a general medical condition [Unknown]
  - Vision blurred [Not Recovered/Not Resolved]
  - Asthma [Unknown]
  - Dyspnoea [Unknown]
  - Arthralgia [Not Recovered/Not Resolved]
  - Knee arthroplasty [Recovered/Resolved]

NARRATIVE: CASE EVENT DATE: 20240101
